FAERS Safety Report 10343462 (Version 3)
Quarter: 2014Q3

REPORT INFORMATION
  Report Type: Spontaneous
  Country: AU (occurrence: AU)
  Receive Date: 20140725
  Receipt Date: 20140730
  Transmission Date: 20150326
  Serious: Yes (Other)
  Sender: FDA-Public Use
  Company Number: AU-ABBVIE-14P-008-1218325-00

PATIENT
  Age: 28 Year
  Sex: Female
  Weight: 48 kg

DRUGS (6)
  1. AZATHIOPRINE. [Concomitant]
     Active Substance: AZATHIOPRINE
  2. AZATHIOPRINE. [Concomitant]
     Active Substance: AZATHIOPRINE
     Indication: THERAPEUTIC RESPONSE DECREASED
     Dates: start: 201309
  3. COLIFOAM [Concomitant]
     Active Substance: HYDROCORTISONE
     Indication: COLITIS
     Route: 054
     Dates: start: 201402
  4. PENTASA [Concomitant]
     Active Substance: MESALAMINE
     Indication: COLITIS
     Route: 054
     Dates: start: 201402
  5. HUMIRA [Suspect]
     Active Substance: ADALIMUMAB
     Indication: CROHN^S DISEASE
     Route: 050
     Dates: start: 201205, end: 20140225
  6. PENTASA [Concomitant]
     Active Substance: MESALAMINE
     Indication: COLITIS
     Route: 048

REACTIONS (14)
  - Neuropathy peripheral [Recovering/Resolving]
  - Blood albumin decreased [Recovering/Resolving]
  - Hypoaesthesia [Unknown]
  - Crohn^s disease [Unknown]
  - Therapeutic response decreased [Unknown]
  - Demyelination [Recovering/Resolving]
  - Weight loss poor [Recovering/Resolving]
  - Anaemia [Unknown]
  - Neuropathy peripheral [Unknown]
  - Colitis [Unknown]
  - Carpal tunnel syndrome [Unknown]
  - Axonal neuropathy [Recovering/Resolving]
  - Demyelination [Recovering/Resolving]
  - Paraesthesia [Unknown]

NARRATIVE: CASE EVENT DATE: 201309
